FAERS Safety Report 6049995-3 (Version None)
Quarter: 2009Q1

REPORT INFORMATION
  Report Type: 
  Country: None (occurrence: None)
  Receive Date: 20090121
  Receipt Date: 20090105
  Transmission Date: 20090719
  Serious: Yes (Death)
  Sender: FDA-Public Use
  Company Number: 2008S1020405

PATIENT
  Age: 61 Year
  Sex: Male

DRUGS (2)
  1. AMNESTEEM [Suspect]
     Indication: BRAIN NEOPLASM MALIGNANT
     Dosage: 100 MG; DAILY; ORAL
     Route: 048
     Dates: end: 20081103
  2. AMNESTEEM [Suspect]
     Indication: BRAIN NEOPLASM MALIGNANT
     Dosage: 200 MG; DAILY; ORAL
     Route: 048

REACTIONS (1)
  - NEOPLASM PROGRESSION [None]
